FAERS Safety Report 8187964-8 (Version None)
Quarter: 2012Q1

REPORT INFORMATION
  Report Type: 
  Country: None (occurrence: None)
  Receive Date: 20120306
  Receipt Date: 20120301
  Transmission Date: 20120608
  Serious: Yes (Hospitalization)
  Sender: FDA-Public Use
  Company Number: DE-GLAXOSMITHKLINE-D0074033A

PATIENT
  Sex: Male
  Weight: 92 kg

DRUGS (5)
  1. BLOOD PRESSURE MEDICATION [Concomitant]
     Route: 065
  2. DUTASTERIDE/TAMSULOSIN HYDROCHLORIDE [Suspect]
     Indication: BENIGN PROSTATIC HYPERPLASIA
     Route: 065
     Dates: start: 20111124
  3. DIURETIC [Concomitant]
     Route: 065
  4. METFORMIN HCL [Concomitant]
     Route: 065
  5. INSULIN [Concomitant]
     Route: 065

REACTIONS (8)
  - PERICARDIAL EFFUSION [None]
  - PERICARDITIS [None]
  - INFECTION [None]
  - HYPOKALAEMIA [None]
  - TACHYARRHYTHMIA [None]
  - ATRIAL FIBRILLATION [None]
  - FALL [None]
  - PLEURAL EFFUSION [None]
